FAERS Safety Report 21807929 (Version 1)
Quarter: 2023Q1

REPORT INFORMATION
  Report Type: Report from Study
  Country: US (occurrence: US)
  Receive Date: 20230103
  Receipt Date: 20230103
  Transmission Date: 20230418
  Serious: No
  Sender: FDA-Public Use
  Company Number: US-ABBVIE-4255848

PATIENT
  Sex: Male

DRUGS (1)
  1. VENCLEXTA [Suspect]
     Active Substance: VENETOCLAX
     Indication: Hypogammaglobulinaemia
     Dosage: TAKE FOUR TABLETS BY MOUTH DAILY. TAKE WITH FOOD, FORM STRENGTH 100 MG
     Route: 048

REACTIONS (3)
  - Illness [Unknown]
  - Off label use [Unknown]
  - Memory impairment [Unknown]
